FAERS Safety Report 8853239 (Version 2)
Quarter: 2013Q3

REPORT INFORMATION
  Report Type: Spontaneous
  Country: FR (occurrence: FR)
  Receive Date: 20121022
  Receipt Date: 20130923
  Transmission Date: 20140515
  Serious: Yes (Other)
  Sender: FDA-Public Use
  Company Number: CHPA2012FR021922

PATIENT
  Age: 48 Year
  Sex: Male

DRUGS (2)
  1. NICOTINELL GUM [Suspect]
     Indication: SMOKING CESSATION THERAPY
     Dosage: 4 MG, UNK
     Dates: end: 201207
  2. SIMVASTATIN [Concomitant]
     Dosage: UNK, UNK

REACTIONS (4)
  - Glaucoma [Unknown]
  - Ocular hyperaemia [Unknown]
  - Dry eye [Unknown]
  - Incorrect drug administration duration [Unknown]
